FAERS Safety Report 7185776-5 (Version None)
Quarter: 2010Q4

REPORT INFORMATION
  Report Type: 
  Country: None (occurrence: None)
  Receive Date: 20101222
  Receipt Date: 20101221
  Transmission Date: 20110411
  Serious: Yes (Hospitalization)
  Sender: FDA-Public Use
  Company Number: FR-CEPHALON-2010006542

PATIENT
  Sex: Female

DRUGS (2)
  1. MODAFINIL [Suspect]
     Route: 048
     Dates: start: 20100401, end: 20100401
  2. LOGIMAX [Suspect]
     Indication: HYPERTENSION
     Route: 048
     Dates: start: 20070601, end: 20100401

REACTIONS (2)
  - OEDEMA PERIPHERAL [None]
  - URTICARIA [None]
